FAERS Safety Report 14018083 (Version 1)
Quarter: 2017Q3

REPORT INFORMATION
  Report Type: Spontaneous
  Country: US (occurrence: US)
  Receive Date: 20170928
  Receipt Date: 20170928
  Transmission Date: 20171128
  Serious: No
  Sender: FDA-Public Use
  Company Number: US-AUROBINDO-AUR-APU-2017-32067

PATIENT
  Age: 49 Year
  Sex: Female

DRUGS (2)
  1. SUMATRIPTAN TABLETS 25MG [Suspect]
     Active Substance: SUMATRIPTAN
     Indication: HEADACHE
     Route: 048
  2. SUMATRIPTAN RANBAXY [Suspect]
     Active Substance: SUMATRIPTAN
     Indication: HEADACHE
     Dosage: 25 MG, UNK
     Route: 048

REACTIONS (1)
  - Feeling abnormal [Unknown]
